FAERS Safety Report 4933189-6 (Version None)
Quarter: 2006Q1

REPORT INFORMATION
  Report Type: 
  Country: None (occurrence: None)
  Receive Date: 20060306
  Receipt Date: 20050414
  Transmission Date: 20060701
  Serious: Yes (Hospitalization, Disabling, Other)
  Sender: FDA-Public Use
  Company Number: US-MERCK-0504USA02388

PATIENT
  Age: 53 Year
  Sex: Male
  Weight: 86 kg

DRUGS (5)
  1. VIOXX [Suspect]
     Indication: BACK PAIN
     Route: 048
     Dates: start: 20010601, end: 20020201
  2. VIOXX [Suspect]
     Route: 048
     Dates: start: 20021001, end: 20030801
  3. ASPIRIN [Concomitant]
     Route: 065
  4. IBUPROFEN [Concomitant]
     Route: 065
  5. VIOXX [Suspect]
     Route: 048

REACTIONS (21)
  - ANGINA UNSTABLE [None]
  - ANXIETY [None]
  - ATRIAL FIBRILLATION [None]
  - BLOOD THYROID STIMULATING HORMONE INCREASED [None]
  - BRACHYTHERAPY [None]
  - BRADYCARDIA [None]
  - CARDIAC TAMPONADE [None]
  - CORONARY ARTERY DISEASE [None]
  - CORONARY ARTERY OCCLUSION [None]
  - DEPRESSION [None]
  - DRESSLER'S SYNDROME [None]
  - HYPERLIPIDAEMIA [None]
  - HYPERTENSION [None]
  - HYPOTENSION [None]
  - HYPOTHYROIDISM [None]
  - LIMB INJURY [None]
  - MYOCARDIAL INFARCTION [None]
  - PERICARDITIS [None]
  - PLEURAL EFFUSION [None]
  - STENT PLACEMENT [None]
  - TACHYCARDIA [None]
